FAERS Safety Report 23426464 (Version 1)
Quarter: 2024Q1

REPORT INFORMATION
  Report Type: Spontaneous
  Country: DZ (occurrence: None)
  Receive Date: 20240122
  Receipt Date: 20240122
  Transmission Date: 20240410
  Serious: Yes (Other)
  Sender: FDA-Public Use
  Company Number: DZ-ROCHE-3490955

PATIENT
  Sex: Female

DRUGS (1)
  1. PERJETA [Suspect]
     Active Substance: PERTUZUMAB
     Indication: Breast cancer metastatic
     Route: 065

REACTIONS (5)
  - Anaphylactic shock [Unknown]
  - Hypersensitivity [Unknown]
  - Erythema [Unknown]
  - Respiratory distress [Unknown]
  - Face oedema [Unknown]
